FAERS Safety Report 11553855 (Version 2)
Quarter: 2016Q2

REPORT INFORMATION
  Report Type: Report from Study
  Country: FR (occurrence: FR)
  Receive Date: 20150925
  Receipt Date: 20160429
  Transmission Date: 20160815
  Serious: Yes (Hospitalization)
  Sender: FDA-Public Use
  Company Number: FR-AMGEN-FRACT2015099351

PATIENT
  Age: 66 Year
  Sex: Male

DRUGS (10)
  1. ADRIBLASTINE [Concomitant]
     Active Substance: DOXORUBICIN
     Indication: TRANSITIONAL CELL CARCINOMA
     Dosage: 46 MG, CYCLICAL
     Route: 042
     Dates: start: 20141001, end: 20141219
  2. CARDENSIEL [Concomitant]
     Active Substance: BISOPROLOL FUMARATE
     Dosage: UNK
  3. VELBE [Concomitant]
     Active Substance: VINBLASTINE SULFATE
     Indication: TRANSITIONAL CELL CARCINOMA
     Dosage: 4.6 MG, CYCLICAL
     Route: 042
     Dates: start: 20141001, end: 20141219
  4. COAPROVEL [Concomitant]
     Active Substance: HYDROCHLOROTHIAZIDE\IRBESARTAN
     Dosage: UNK
  5. PANITUMUMAB [Suspect]
     Active Substance: PANITUMUMAB
     Indication: TRANSITIONAL CELL CARCINOMA
     Dosage: 46 MG, PER CYCLE
     Route: 042
     Dates: start: 20140930, end: 20141219
  6. METHOTREXATE [Concomitant]
     Active Substance: METHOTREXATE
     Indication: TRANSITIONAL CELL CARCINOMA
     Dosage: 46 MG, CYCLICAL
     Route: 042
     Dates: start: 20140930, end: 20141218
  7. CISPLATIN. [Concomitant]
     Active Substance: CISPLATIN
     Indication: TRANSITIONAL CELL CARCINOMA
     Dosage: 108 MG, CYCLICAL
     Route: 042
     Dates: start: 20141001, end: 20141219
  8. ALLOPURINOL. [Concomitant]
     Active Substance: ALLOPURINOL
     Dosage: UNK
  9. GLUCOR [Concomitant]
     Active Substance: ACARBOSE
     Dosage: UNK
  10. DAONIL [Concomitant]
     Active Substance: GLYBURIDE
     Dosage: UNK

REACTIONS (1)
  - Aphasia [Recovered/Resolved]

NARRATIVE: CASE EVENT DATE: 20141231
